FAERS Safety Report 6230564-7 (Version None)
Quarter: 2009Q2

REPORT INFORMATION
  Report Type: 
  Country: None (occurrence: None)
  Receive Date: 20090615
  Receipt Date: 20090428
  Transmission Date: 20091009
  Serious: No
  Sender: FDA-Public Use
  Company Number: US-ABBOTT-09P-163-0570512-00

PATIENT
  Sex: Female
  Weight: 63.106 kg

DRUGS (7)
  1. TRILIPIX [Suspect]
     Indication: BLOOD TRIGLYCERIDES INCREASED
     Route: 048
     Dates: start: 20090414
  2. PREVOCOL [Concomitant]
     Indication: BLOOD CHOLESTEROL INCREASED
  3. FISH OIL [Concomitant]
     Indication: MEDICAL DIET
     Route: 048
  4. METFORMIN HYDROCHLORIDE [Concomitant]
     Indication: TYPE 2 DIABETES MELLITUS
     Route: 048
  5. CENTRUM SILVER [Concomitant]
     Indication: MEDICAL DIET
     Dosage: UNKNOWN
     Route: 048
  6. CALCIUM [Concomitant]
     Indication: MEDICAL DIET
     Dosage: UNKNOWN
     Route: 048
  7. METOPROLOL SUCCINATE [Concomitant]
     Indication: HYPERTENSION
     Route: 048

REACTIONS (1)
  - HEADACHE [None]
